FAERS Safety Report 5955039-1 (Version None)
Quarter: 2008Q4

REPORT INFORMATION
  Report Type: 
  Country: None (occurrence: None)
  Receive Date: 20081117
  Receipt Date: 20081105
  Transmission Date: 20090506
  Serious: Yes (Death, Congenital Anomaly)
  Sender: FDA-Public Use
  Company Number: B0509459B

PATIENT

DRUGS (5)
  1. COMBIVIR [Suspect]
     Indication: HIV INFECTION
  2. KALETRA [Suspect]
     Indication: HIV INFECTION
  3. KIVEXA [Concomitant]
  4. NEVIRAPINE [Concomitant]
  5. EFAVIRENZ [Concomitant]

REACTIONS (4)
  - CARDIAC MALPOSITION [None]
  - CONGENITAL DIAPHRAGMATIC ANOMALY [None]
  - DRUG EXPOSURE DURING PREGNANCY [None]
  - HEPATIC DISPLACEMENT [None]
